FAERS Safety Report 14418646 (Version 1)
Quarter: 2018Q1

REPORT INFORMATION
  Report Type: Spontaneous
  Country: US (occurrence: US)
  Receive Date: 20180122
  Receipt Date: 20180122
  Transmission Date: 20180509
  Serious: No
  Sender: FDA-Public Use
  Company Number: US-TEVA-2017-US-842159

PATIENT
  Sex: Female

DRUGS (2)
  1. BUPROPION. [Suspect]
     Active Substance: BUPROPION
     Indication: SMOKING CESSATION THERAPY
     Dosage: DOSE STRENGTH: 150
     Route: 065
  2. BUPROPION. [Suspect]
     Active Substance: BUPROPION
     Indication: APPETITE DISORDER

REACTIONS (1)
  - Drug prescribing error [Unknown]
